FAERS Safety Report 24397892 (Version 9)
Quarter: 2025Q1

REPORT INFORMATION
  Report Type: Spontaneous
  Country: US (occurrence: US)
  Receive Date: 20241004
  Receipt Date: 20250226
  Transmission Date: 20250408
  Serious: No
  Sender: PFIZER
  Company Number: US-PFIZER INC-PV202400128456

PATIENT
  Age: 66 Year
  Sex: Female

DRUGS (2)
  1. IBRANCE [Suspect]
     Active Substance: PALBOCICLIB
     Dates: start: 20240923
  2. ANASTROZOLE [Concomitant]
     Active Substance: ANASTROZOLE

REACTIONS (6)
  - Alopecia [Unknown]
  - Nausea [Recovered/Resolved]
  - Fatigue [Unknown]
  - Diarrhoea [Not Recovered/Not Resolved]
  - Blood pressure abnormal [Unknown]
  - Dehydration [Unknown]

NARRATIVE: CASE EVENT DATE: 20240101
